FAERS Safety Report 21181707 (Version 1)
Quarter: 2022Q3

REPORT INFORMATION
  Report Type: Spontaneous
  Country: US (occurrence: US)
  Receive Date: 20220806
  Receipt Date: 20220806
  Transmission Date: 20221027
  Serious: Yes (Other)
  Sender: FDA-Public Use
  Company Number: US-SA-SAC20220804000318

PATIENT
  Sex: Male

DRUGS (1)
  1. ALPROLIX [Suspect]
     Active Substance: EFTRENONACOG ALFA
     Indication: Factor IX deficiency
     Dosage: 4000 U, QW (3600-4400) SLOW IV PUSH STRENGTH: 3285U; 546U
     Route: 042
     Dates: start: 202110

REACTIONS (1)
  - Haemarthrosis [Recovered/Resolved]
